FAERS Safety Report 11094175 (Version 1)
Quarter: 2015Q2

REPORT INFORMATION
  Report Type: Spontaneous
  Country: GB (occurrence: GB)
  Receive Date: 20150506
  Receipt Date: 20150506
  Transmission Date: 20150821
  Serious: Yes (Hospitalization)
  Sender: FDA-Public Use
  Company Number: GB-GLAXOSMITHKLINE-GB2015058852

PATIENT
  Age: 65 Year
  Sex: Female

DRUGS (2)
  1. CALCIUM [Concomitant]
     Active Substance: CALCIUM
  2. LAMOTRIGINE. [Suspect]
     Active Substance: LAMOTRIGINE
     Indication: EPILEPSY
     Route: 048

REACTIONS (4)
  - Toxicity to various agents [Recovering/Resolving]
  - Neurological symptom [Recovering/Resolving]
  - Confusional state [Recovering/Resolving]
  - Drug prescribing error [Unknown]

NARRATIVE: CASE EVENT DATE: 20150322
